FAERS Safety Report 14426678 (Version 3)
Quarter: 2018Q4

REPORT INFORMATION
  Report Type: Spontaneous
  Country: US (occurrence: US)
  Receive Date: 20180123
  Receipt Date: 20181019
  Transmission Date: 20190204
  Serious: No
  Sender: FDA-Public Use
  Company Number: US-ROCHE-2011617

PATIENT
  Age: 42 Year
  Sex: Female

DRUGS (8)
  1. OCREVUS [Suspect]
     Active Substance: OCRELIZUMAB
     Indication: RELAPSING-REMITTING MULTIPLE SCLEROSIS
     Dosage: 08/AUG/2017
     Route: 042
     Dates: start: 20170802
  2. TYLENOL [Concomitant]
     Active Substance: ACETAMINOPHEN
  3. ALPHA LIPOIC ACID [Concomitant]
     Active Substance: .ALPHA.-LIPOIC ACID
     Route: 065
  4. BIOTIN [Concomitant]
     Active Substance: BIOTIN
     Route: 065
  5. BENADRYL [Concomitant]
     Active Substance: DIPHENHYDRAMINE HYDROCHLORIDE
     Route: 042
  6. SALINE [Concomitant]
     Active Substance: SODIUM CHLORIDE
  7. VITAMIN B COMPLEX [Concomitant]
     Active Substance: CYANOCOBALAMIN\DEXPANTHENOL\NIACINAMIDE\PYRIDOXINE HYDROCHLORIDE\RIBOFLAVIN 5^-PHOSPHATE SODIUM\THIAMINE HYDROCHLORIDE\VITAMIN B COMPLEX
  8. AMPYRA [Concomitant]
     Active Substance: DALFAMPRIDINE

REACTIONS (11)
  - Pruritus [Unknown]
  - Peroneal nerve palsy [Unknown]
  - Pain in extremity [Unknown]
  - Arthralgia [Unknown]
  - Influenza [Unknown]
  - Dysphonia [Unknown]
  - Fatigue [Recovered/Resolved]
  - Joint effusion [Unknown]
  - Pruritus [Recovered/Resolved]
  - Malaise [Recovered/Resolved]
  - Neuropathy peripheral [Unknown]

NARRATIVE: CASE EVENT DATE: 20170802
